FAERS Safety Report 13185876 (Version 1)
Quarter: 2017Q1

REPORT INFORMATION
  Report Type: Report from Study
  Country: MX (occurrence: MX)
  Receive Date: 20170204
  Receipt Date: 20170204
  Transmission Date: 20170428
  Serious: Yes (Other)
  Sender: FDA-Public Use
  Company Number: PHHY2016MX104714

PATIENT
  Sex: Male

DRUGS (8)
  1. GALVUS [Suspect]
     Active Substance: VILDAGLIPTIN
     Indication: BLOOD PRESSURE INCREASED
     Dosage: 1 DF, QD
     Route: 065
     Dates: start: 2013
  2. GLUCOBAY [Concomitant]
     Active Substance: ACARBOSE
     Indication: PRODUCT USED FOR UNKNOWN INDICATION
     Dosage: UNK
     Route: 065
  3. DIOVAN [Suspect]
     Active Substance: VALSARTAN
     Indication: BLOOD PRESSURE INCREASED
     Dosage: 1 DF, QD (APPROXIMATELY 2 YEARS AGO)
     Route: 065
     Dates: start: 2013
  4. DIOVAN [Suspect]
     Active Substance: VALSARTAN
     Indication: CARDIOVASCULAR EVENT PROPHYLAXIS
  5. EUGLUCON [Concomitant]
     Active Substance: GLYBURIDE
     Indication: PRODUCT USED FOR UNKNOWN INDICATION
     Dosage: UNK
     Route: 065
  6. GALVUS MET [Suspect]
     Active Substance: METFORMIN HYDROCHLORIDE\VILDAGLIPTIN
     Indication: BLOOD PRESSURE INCREASED
     Dosage: 1 DF (METFORMIN 500 MG, VILDAGLIPTIN 50 MG), QD
     Route: 065
     Dates: start: 2013
  7. GALVUS MET [Suspect]
     Active Substance: METFORMIN HYDROCHLORIDE\VILDAGLIPTIN
     Indication: CARDIOVASCULAR EVENT PROPHYLAXIS
  8. GALVUS [Suspect]
     Active Substance: VILDAGLIPTIN
     Indication: CARDIOVASCULAR EVENT PROPHYLAXIS

REACTIONS (9)
  - Illness anxiety disorder [Unknown]
  - Erectile dysfunction [Unknown]
  - Blood pressure increased [Unknown]
  - Renal disorder [Unknown]
  - Product use issue [Recovered/Resolved]
  - Asphyxia [Unknown]
  - Dyspnoea [Unknown]
  - Nightmare [Unknown]
  - Feeling abnormal [Unknown]
